FAERS Safety Report 12319676 (Version 7)
Quarter: 2017Q3

REPORT INFORMATION
  Report Type: Report from Study
  Country: GB (occurrence: GB)
  Receive Date: 20160429
  Receipt Date: 20170811
  Transmission Date: 20171127
  Serious: Yes (Hospitalization)
  Sender: FDA-Public Use
  Company Number: GB-CELGENEUS-GBR-2016044738

PATIENT
  Age: 66 Year
  Sex: Male

DRUGS (16)
  1. TRAMADOL. [Concomitant]
     Active Substance: TRAMADOL
     Indication: PRODUCT USED FOR UNKNOWN INDICATION
     Dosage: 200 MILLIGRAM
     Route: 048
     Dates: start: 201602
  2. PARACETAMOL [Concomitant]
     Active Substance: ACETAMINOPHEN
     Indication: PRODUCT USED FOR UNKNOWN INDICATION
     Dosage: 4 GRAM
     Route: 048
     Dates: start: 201602
  3. ABRAXANE [Suspect]
     Active Substance: PACLITAXEL
     Dosage: 22.5 MILLIGRAM
     Route: 041
     Dates: start: 20160412, end: 20160426
  4. GEMCITABINE [Suspect]
     Active Substance: GEMCITABINE\GEMCITABINE HYDROCHLORIDE
     Dosage: 180 MILLIGRAM
     Route: 041
     Dates: start: 20160412, end: 20160426
  5. CREON [Concomitant]
     Active Substance: PANCRELIPASE AMYLASE\PANCRELIPASE LIPASE\PANCRELIPASE PROTEASE
     Indication: PRODUCT USED FOR UNKNOWN INDICATION
     Dosage: 10.000 U
     Route: 048
     Dates: start: 201601
  6. GEMCITABINE [Suspect]
     Active Substance: GEMCITABINE\GEMCITABINE HYDROCHLORIDE
     Indication: PANCREATIC CARCINOMA METASTATIC
     Dosage: 180 MILLIGRAM
     Route: 041
     Dates: start: 20160216, end: 20160426
  7. TRAMADOL. [Concomitant]
     Active Substance: TRAMADOL
     Route: 048
     Dates: start: 20160506, end: 20160506
  8. LANTUS SOLOSTAR [Concomitant]
     Active Substance: INSULIN GLARGINE
     Indication: PRODUCT USED FOR UNKNOWN INDICATION
     Dosage: 8U
     Route: 058
     Dates: start: 201512
  9. ABRAXANE [Suspect]
     Active Substance: PACLITAXEL
     Indication: PANCREATIC CARCINOMA METASTATIC
     Dosage: 22.5 MILLIGRAM
     Route: 041
     Dates: start: 20160216, end: 20160426
  10. PARACETAMOL [Concomitant]
     Active Substance: ACETAMINOPHEN
     Route: 041
     Dates: start: 20160504
  11. BISOPROLOL [Concomitant]
     Active Substance: BISOPROLOL
     Indication: PRODUCT USED FOR UNKNOWN INDICATION
     Dosage: 7.5 MILLIGRAM
     Route: 048
     Dates: start: 2011
  12. APIXABAN [Concomitant]
     Active Substance: APIXABAN
     Indication: PRODUCT USED FOR UNKNOWN INDICATION
     Dosage: 10 MILLIGRAM
     Route: 048
     Dates: start: 201404
  13. PHOSPHATE SANDOZ [Concomitant]
     Active Substance: SODIUM PHOSPHATE, MONOBASIC, ANHYDROUS
     Indication: PRODUCT USED FOR UNKNOWN INDICATION
     Dosage: 4 TABLET
     Route: 048
     Dates: start: 20160418, end: 20160418
  14. DEXAMETHASONE. [Concomitant]
     Active Substance: DEXAMETHASONE
     Indication: PRODUCT USED FOR UNKNOWN INDICATION
     Dosage: 2 MILLIGRAM
     Route: 048
     Dates: start: 20160412
  15. NOVORAPID [Concomitant]
     Active Substance: INSULIN ASPART
     Indication: PRODUCT USED FOR UNKNOWN INDICATION
     Dosage: 8U
     Route: 058
     Dates: start: 201512
  16. GAVISCON [Concomitant]
     Active Substance: ALUMINUM HYDROXIDE\MAGNESIUM CARBONATE
     Indication: PRODUCT USED FOR UNKNOWN INDICATION
     Dosage: 10 MILLILITER
     Route: 048
     Dates: start: 20160418

REACTIONS (4)
  - Enterococcal sepsis [Recovered/Resolved with Sequelae]
  - Pyrexia [Not Recovered/Not Resolved]
  - Pancreatitis [Recovered/Resolved with Sequelae]
  - Abdominal pain [Recovered/Resolved with Sequelae]

NARRATIVE: CASE EVENT DATE: 20160417
